FAERS Safety Report 7209610-X (Version None)
Quarter: 2011Q1

REPORT INFORMATION
  Report Type: 
  Country: None (occurrence: None)
  Receive Date: 20110104
  Receipt Date: 20101231
  Transmission Date: 20110831
  Serious: Yes (Death)
  Sender: FDA-Public Use
  Company Number: US-ASTRAZENECA-2011SE00009

PATIENT
  Age: 33 Year
  Sex: Female

DRUGS (9)
  1. HYDROCODONE BITARTRATE AND ACETAMINOPHEN [Suspect]
     Route: 048
  2. TRAZODONE [Suspect]
     Route: 048
  3. ARIPIPRAZOLE [Suspect]
     Route: 048
  4. ROSIGLITAZONE [Suspect]
     Route: 048
  5. ROSUVASTATIN [Suspect]
     Route: 048
  6. LISINOPRIL [Suspect]
     Route: 048
  7. OXYCODONE [Suspect]
     Route: 048
  8. NORTRIPTYLINE HCL [Suspect]
     Route: 048
  9. DICLOFENAC [Suspect]
     Route: 048

REACTIONS (2)
  - TOXICITY TO VARIOUS AGENTS [None]
  - CARDIO-RESPIRATORY ARREST [None]
